FAERS Safety Report 7691187-6 (Version None)
Quarter: 2011Q3

REPORT INFORMATION
  Report Type: 
  Country: None (occurrence: None)
  Receive Date: 20110817
  Receipt Date: 20110817
  Transmission Date: 20111222
  Serious: Yes (Other)
  Sender: FDA-Public Use
  Company Number: None

PATIENT
  Age: 77 Year
  Sex: Female

DRUGS (10)
  1. HYDROCHLOROTHIAZIDE [Concomitant]
  2. AMPYRA [Suspect]
     Dosage: AMPYRA 10 MG DAILY ORALLY
     Route: 048
     Dates: start: 20110719, end: 20110731
  3. TRAZODONE HCL [Concomitant]
  4. APAP TAB [Concomitant]
  5. ALENDRONATE SODIUM [Concomitant]
  6. GABAPENTIN [Concomitant]
  7. AMANTADINE HCL [Concomitant]
  8. AMPYRA [Suspect]
     Indication: MULTIPLE SCLEROSIS
     Dosage: AMYPRA 10 MG Q12H ORAL
     Route: 048
     Dates: start: 20100812, end: 20100817
  9. ERGOCALCIFEROL [Concomitant]
  10. BISACODYL [Concomitant]

REACTIONS (6)
  - ABNORMAL DREAMS [None]
  - FALL [None]
  - HEART RATE INCREASED [None]
  - DIZZINESS [None]
  - ASTHENIA [None]
  - ANKLE FRACTURE [None]
